FAERS Safety Report 5476678-0 (Version None)
Quarter: 2007Q4

REPORT INFORMATION
  Report Type: 
  Country: None (occurrence: None)
  Receive Date: 20071001
  Receipt Date: 20070918
  Transmission Date: 20080405
  Serious: Yes (Other)
  Sender: FDA-Public Use
  Company Number: 100#03#2007-03655

PATIENT
  Age: 21 Year
  Sex: Female

DRUGS (4)
  1. IBUPROFEN [Suspect]
     Indication: ANALGESIA
     Dates: start: 20030101, end: 20030101
  2. AZITHROMYCIN [Suspect]
     Indication: ANTIINFLAMMATORY THERAPY
     Dates: end: 20030101
  3. COLOMYCIN (COLISTIN) (COLISTIN) [Suspect]
     Indication: PSEUDOMONAS INFECTION
     Dosage: 2 MEGANUNITS THERE TIMES DAILY , INTRAVENOUS
     Route: 042
     Dates: start: 20031101
  4. TOBRAMYCIN [Suspect]
     Indication: PSEUDOMONAS INFECTION
     Dosage: 120MG THREE TIMES DAILY (8 MCG/KG/DAY) (1/1 DAYS)
     Route: 042
     Dates: start: 20031101

REACTIONS (10)
  - ARTHROPATHY [None]
  - DRUG INTERACTION [None]
  - DYSPEPSIA [None]
  - INFLUENZA LIKE ILLNESS [None]
  - NEPHRITIS INTERSTITIAL [None]
  - ORAL INTAKE REDUCED [None]
  - RENAL FAILURE ACUTE [None]
  - RENAL IMPAIRMENT [None]
  - VOMITING [None]
  - WEIGHT DECREASED [None]
